FAERS Safety Report 10712467 (Version 2)
Quarter: 2015Q1

REPORT INFORMATION
  Report Type: Report from Study
  Country: DE (occurrence: DE)
  Receive Date: 20150115
  Receipt Date: 20150306
  Transmission Date: 20150721
  Serious: Yes (Hospitalization)
  Sender: FDA-Public Use
  Company Number: DE-ROCHE-1520837

PATIENT
  Age: 59 Year
  Sex: Male

DRUGS (13)
  1. SIOFOR [Concomitant]
     Active Substance: METFORMIN HYDROCHLORIDE
  2. PREDNISOLON [Concomitant]
     Active Substance: PREDNISOLONE
  3. CORDAREX (GERMANY) [Concomitant]
  4. PANTOZOL [Concomitant]
     Active Substance: PANTOPRAZOLE SODIUM
  5. AMPHO-MORONAL [Concomitant]
     Active Substance: AMPHOTERICIN B
  6. BISOPROLOL [Concomitant]
     Active Substance: BISOPROLOL
  7. LYRICA [Concomitant]
     Active Substance: PREGABALIN
  8. DELIX (GERMANY) [Concomitant]
  9. TOCILIZUMAB [Suspect]
     Active Substance: TOCILIZUMAB
     Indication: RHEUMATOID ARTHRITIS
     Route: 058
     Dates: end: 20140919
  10. SPIRIVA [Concomitant]
     Active Substance: TIOTROPIUM BROMIDE MONOHYDRATE
  11. AMITRIPTYLIN [Concomitant]
     Active Substance: AMITRIPTYLINE
  12. TORASEMID [Concomitant]
     Active Substance: TORSEMIDE
  13. SPIRONOLACTON [Concomitant]
     Active Substance: SPIRONOLACTONE

REACTIONS (3)
  - Ischaemia [Unknown]
  - Muscular weakness [Not Recovered/Not Resolved]
  - Peripheral arterial occlusive disease [Recovered/Resolved with Sequelae]

NARRATIVE: CASE EVENT DATE: 201410
